FAERS Safety Report 13639141 (Version 1)
Quarter: 2017Q2

REPORT INFORMATION
  Report Type: Spontaneous
  Country: US (occurrence: US)
  Receive Date: 20170609
  Receipt Date: 20170609
  Transmission Date: 20170830
  Serious: No
  Sender: FDA-Public Use
  Company Number: US-ROCHE-1518624

PATIENT
  Sex: Male

DRUGS (3)
  1. CLONAZEPAM. [Suspect]
     Active Substance: CLONAZEPAM
     Indication: PARKINSONISM
     Route: 048
  2. SINEMET [Suspect]
     Active Substance: CARBIDOPA\LEVODOPA
     Indication: PARKINSONISM
     Route: 048
  3. THIORIDAZINE [Suspect]
     Active Substance: THIORIDAZINE
     Indication: PARKINSONISM
     Route: 048

REACTIONS (2)
  - Salivary hypersecretion [Unknown]
  - Sedation [Unknown]
